FAERS Safety Report 18575458 (Version 1)
Quarter: 2020Q4

REPORT INFORMATION
  Report Type: Spontaneous
  Country: US (occurrence: US)
  Receive Date: 20201203
  Receipt Date: 20201203
  Transmission Date: 20210114
  Serious: Yes (Death, Hospitalization, Other)
  Sender: FDA-Public Use
  Company Number: US-GLAXOSMITHKLINE-US2020AMR236385

PATIENT
  Sex: Female

DRUGS (2)
  1. LAMICTAL [Suspect]
     Active Substance: LAMOTRIGINE
     Indication: EPILEPSY
     Dosage: 150 MG, QD EVERY EVENING
     Route: 048
  2. LAMICTAL [Suspect]
     Active Substance: LAMOTRIGINE
     Dosage: 200 MG, QD, EVERY MORNING
     Route: 048

REACTIONS (10)
  - Vascular occlusion [Unknown]
  - Colon cancer [Fatal]
  - Syncope [Unknown]
  - Fall [Unknown]
  - Illness [Unknown]
  - Metastases to pancreas [Fatal]
  - Internal haemorrhage [Unknown]
  - Blood pressure abnormal [Unknown]
  - Metastases to liver [Fatal]
  - Gastroenteritis viral [Unknown]
